FAERS Safety Report 4269697-3 (Version None)
Quarter: 2004Q1

REPORT INFORMATION
  Report Type: 
  Country: None (occurrence: None)
  Receive Date: 20040112
  Receipt Date: 20031229
  Transmission Date: 20041129
  Serious: Yes (Death)
  Sender: FDA-Public Use
  Company Number: 200323114GDDC

PATIENT
  Age: 100 Year
  Sex: Male
  Weight: 60 kg

DRUGS (6)
  1. INDAPAMIDE [Suspect]
     Indication: CARDIAC FAILURE CONGESTIVE
     Dosage: 2.5 MG/DAY PO
     Route: 048
     Dates: start: 19900101, end: 20030513
  2. CELEBREX [Suspect]
     Indication: OSTEOARTHRITIS
     Dosage: 200 MG/DAY PO
     Route: 048
     Dates: start: 19900101, end: 20030512
  3. CELEBREX [Suspect]
     Indication: OSTEOARTHRITIS
     Dosage: 100 MG/DAY PO
     Route: 048
     Dates: start: 20030513
  4. FRUSEMIDE [Suspect]
     Indication: CARDIAC FAILURE CONGESTIVE
     Dosage: 40 MG/DAY
     Dates: start: 19900101, end: 20030513
  5. FRUSEMIDE [Suspect]
     Indication: CARDIAC FAILURE CONGESTIVE
     Dosage: 40 MG/DAY
     Dates: start: 20030527
  6. RAMIPRIL [Concomitant]

REACTIONS (7)
  - EMBOLISM [None]
  - HYPERKALAEMIA [None]
  - HYPONATRAEMIA [None]
  - MUSCLE ATROPHY [None]
  - PNEUMONIA [None]
  - POST PROCEDURAL COMPLICATION [None]
  - RENAL IMPAIRMENT [None]
